FAERS Safety Report 10345287 (Version 10)
Quarter: 2015Q2

REPORT INFORMATION
  Report Type: Report from Study
  Country: US (occurrence: US)
  Receive Date: 20140728
  Receipt Date: 20150529
  Transmission Date: 20150821
  Serious: Yes (Hospitalization, Other)
  Sender: FDA-Public Use
  Company Number: US-SA-2014SA098558

PATIENT
  Age: 72 Year
  Sex: Female

DRUGS (1)
  1. AUBAGIO [Suspect]
     Active Substance: TERIFLUNOMIDE
     Indication: MULTIPLE SCLEROSIS
     Route: 048
     Dates: start: 20140709, end: 20141101

REACTIONS (15)
  - Herpes zoster [Unknown]
  - Paraesthesia [Unknown]
  - Rash [Unknown]
  - Pain [Unknown]
  - Alopecia [Unknown]
  - Drug ineffective [Unknown]
  - Arthropathy [Unknown]
  - Depressed mood [Unknown]
  - Burning sensation [Unknown]
  - Diarrhoea [Recovered/Resolved]
  - Unevaluable event [Unknown]
  - Myocardial infarction [Unknown]
  - Nervous system disorder [Unknown]
  - Joint range of motion decreased [Unknown]
  - Fatigue [Not Recovered/Not Resolved]

NARRATIVE: CASE EVENT DATE: 2014
